FAERS Safety Report 11857674 (Version 1)
Quarter: 2015Q4

REPORT INFORMATION
  Report Type: Spontaneous
  Country: US (occurrence: None)
  Receive Date: 20151221
  Receipt Date: 20151221
  Transmission Date: 20160305
  Serious: No
  Sender: FDA-Public Use
  Company Number: None

PATIENT
  Age: 57 Year
  Sex: Female

DRUGS (2)
  1. DOCQLACE [Concomitant]
     Active Substance: DOCUSATE SODIUM
  2. NEULASTA [Suspect]
     Active Substance: PEGFILGRASTIM
     Indication: NEOPLASM MALIGNANT
     Dosage: 6MG, 24 POST CHEMO, SQ
     Dates: start: 20151113

REACTIONS (1)
  - Bone pain [None]

NARRATIVE: CASE EVENT DATE: 201511
